FAERS Safety Report 18660579 (Version 2)
Quarter: 2021Q1

REPORT INFORMATION
  Report Type: Spontaneous
  Country: JP (occurrence: JP)
  Receive Date: 20201223
  Receipt Date: 20210225
  Transmission Date: 20210419
  Serious: Yes (Death, Other)
  Sender: FDA-Public Use
  Company Number: JP-AMGEN-JPNSP2020164806

PATIENT
  Age: 40 Year
  Sex: Female

DRUGS (2)
  1. ROMIPLATE [Suspect]
     Active Substance: ROMIPLOSTIM
     Dosage: 10 MICROGRAM
     Route: 058
     Dates: start: 202010, end: 20201203
  2. ROMIPLATE [Suspect]
     Active Substance: ROMIPLOSTIM
     Indication: BONE MARROW FAILURE
     Dosage: 5 MICROGRAM
     Route: 058
     Dates: start: 202010, end: 202010

REACTIONS (2)
  - Graft versus host disease [Fatal]
  - Off label use [Unknown]
